FAERS Safety Report 5127361-2 (Version None)
Quarter: 2006Q4

REPORT INFORMATION
  Report Type: 
  Country: None (occurrence: None)
  Receive Date: 20061010
  Receipt Date: 20061003
  Transmission Date: 20070319
  Serious: Yes (Disabling)
  Sender: FDA-Public Use
  Company Number: B0441013A

PATIENT
  Age: 73 Year
  Sex: Female

DRUGS (6)
  1. PAXIL [Suspect]
     Indication: DEPRESSION
     Dosage: 20 MG/ PER DAY
  2. LEVOTHYROXINE SODIUM [Concomitant]
  3. LOSARTAN POTASSIUM [Concomitant]
  4. PRAVASTATIN [Concomitant]
  5. OMEPRAZOLE [Concomitant]
  6. ASPIRIN [Concomitant]

REACTIONS (17)
  - AGORAPHOBIA [None]
  - ANTICIPATORY ANXIETY [None]
  - ANXIETY [None]
  - CONDITION AGGRAVATED [None]
  - DEPERSONALISATION [None]
  - DEREALISATION [None]
  - DISABILITY [None]
  - DYSPNOEA [None]
  - INSOMNIA [None]
  - NAUSEA [None]
  - PALPITATIONS [None]
  - PANIC ATTACK [None]
  - PANIC DISORDER [None]
  - PANIC REACTION [None]
  - REBOUND EFFECT [None]
  - TENSION [None]
  - THERAPY CESSATION [None]
